FAERS Safety Report 12632654 (Version 2)
Quarter: 2016Q3

REPORT INFORMATION
  Report Type: Spontaneous
  Country: US (occurrence: US)
  Receive Date: 20160808
  Receipt Date: 20160808
  Transmission Date: 20161109
  Serious: No
  Sender: FDA-Public Use
  Company Number: US-BEH-2015056417

PATIENT
  Age: 73 Year
  Sex: Female
  Weight: 64 kg

DRUGS (21)
  1. EPIPEN [Concomitant]
     Active Substance: EPINEPHRINE
  2. ALBUTEROL. [Concomitant]
     Active Substance: ALBUTEROL
  3. SPIRIVA [Concomitant]
     Active Substance: TIOTROPIUM BROMIDE MONOHYDRATE
  4. ACETAMINOPHEN. [Concomitant]
     Active Substance: ACETAMINOPHEN
  5. PREDNISONE. [Concomitant]
     Active Substance: PREDNISONE
  6. OXYGEN. [Concomitant]
     Active Substance: OXYGEN
  7. HIZENTRA [Suspect]
     Active Substance: HUMAN IMMUNOGLOBULIN G
     Indication: IMMUNODEFICIENCY COMMON VARIABLE
     Route: 058
  8. DIPHENHYDRAMINE. [Concomitant]
     Active Substance: DIPHENHYDRAMINE
  9. LIDOCAINE. [Concomitant]
     Active Substance: LIDOCAINE
  10. PROTONIX [Concomitant]
     Active Substance: PANTOPRAZOLE SODIUM
  11. ZYRTEC [Concomitant]
     Active Substance: CETIRIZINE HYDROCHLORIDE
  12. COREG [Concomitant]
     Active Substance: CARVEDILOL
  13. COZAAR [Concomitant]
     Active Substance: LOSARTAN POTASSIUM
  14. LEVAQUIN [Concomitant]
     Active Substance: LEVOFLOXACIN
  15. ZOCOR [Concomitant]
     Active Substance: SIMVASTATIN
  16. AMBIEN [Concomitant]
     Active Substance: ZOLPIDEM TARTRATE
  17. LEXAPRO [Concomitant]
     Active Substance: ESCITALOPRAM OXALATE
  18. MUCINEX ER [Concomitant]
  19. ALDACTONE [Concomitant]
     Active Substance: SPIRONOLACTONE
  20. ACETYLCYSTEINE. [Concomitant]
     Active Substance: ACETYLCYSTEINE
  21. VITAMIN D [Concomitant]
     Active Substance: CHOLECALCIFEROL

REACTIONS (1)
  - Upper respiratory tract infection [Unknown]

NARRATIVE: CASE EVENT DATE: 201510
